FAERS Safety Report 4504961-1 (Version None)
Quarter: 2004Q4

REPORT INFORMATION
  Report Type: 
  Country: None (occurrence: None)
  Receive Date: 20041020
  Receipt Date: 20040920
  Transmission Date: 20050328
  Serious: No
  Sender: FDA-Public Use
  Company Number: 2004-09-1205

PATIENT
  Sex: Female

DRUGS (1)
  1. CLARINEX [Suspect]
     Indication: HYPERSENSITIVITY
     Dosage: ORAL
     Route: 048
     Dates: start: 20040915, end: 20040916

REACTIONS (3)
  - ABNORMAL DREAMS [None]
  - DIZZINESS [None]
  - INSOMNIA [None]
